FAERS Safety Report 9208392 (Version 1)
Quarter: 2013Q2

REPORT INFORMATION
  Report Type: Spontaneous
  Country: US (occurrence: US)
  Receive Date: 20130404
  Receipt Date: 20130404
  Transmission Date: 20140414
  Serious: No
  Sender: FDA-Public Use
  Company Number: US-BIOGENIDEC-2013BI018938

PATIENT
  Age: 29 Year
  Sex: 0

DRUGS (1)
  1. AVONEX [Suspect]
     Indication: MULTIPLE SCLEROSIS
     Route: 030
     Dates: start: 20121022

REACTIONS (4)
  - Injection site bruising [Not Recovered/Not Resolved]
  - Muscle spasms [Unknown]
  - Contusion [Not Recovered/Not Resolved]
  - Injection site pain [Recovered/Resolved]
